FAERS Safety Report 4574369-1 (Version None)
Quarter: 2005Q1

REPORT INFORMATION
  Report Type: 
  Country: None (occurrence: None)
  Receive Date: 20050208
  Receipt Date: 20041210
  Transmission Date: 20050727
  Serious: No
  Sender: FDA-Public Use
  Company Number: US-GLAXOSMITHKLINE-A0536855A

PATIENT
  Age: 33 Year
  Sex: Female

DRUGS (2)
  1. PAXIL [Suspect]
     Indication: OBSESSIVE-COMPULSIVE DISORDER
     Dosage: 20MG PER DAY
     Route: 048
     Dates: start: 19990101, end: 20020101
  2. NO CONCURRENT MEDICATION [Concomitant]

REACTIONS (3)
  - LIBIDO DECREASED [None]
  - ORGASM ABNORMAL [None]
  - WEIGHT INCREASED [None]
